FAERS Safety Report 11474694 (Version 1)
Quarter: 2015Q3

REPORT INFORMATION
  Report Type: Spontaneous
  Country: US (occurrence: None)
  Receive Date: 20150908
  Receipt Date: 20150908
  Transmission Date: 20151125
  Serious: No
  Sender: FDA-Public Use
  Company Number: None

PATIENT
  Age: 19 Year
  Sex: Male
  Weight: 77.11 kg

DRUGS (3)
  1. MELOXICAM. [Concomitant]
     Active Substance: MELOXICAM
  2. AMITRIPTYLINE [Concomitant]
     Active Substance: AMITRIPTYLINE
  3. TIZANIDINE. [Suspect]
     Active Substance: TIZANIDINE
     Indication: INFLAMMATION
     Dosage: 1 1/2 PILLS, AT BEDTIME, TAKEN BY MOUTH
     Dates: start: 20150721

REACTIONS (9)
  - Disorientation [None]
  - Crying [None]
  - Hallucination, visual [None]
  - Hallucination [None]
  - Drug ineffective [None]
  - Fear [None]
  - Feeling abnormal [None]
  - Confusional state [None]
  - Somnolence [None]

NARRATIVE: CASE EVENT DATE: 20150904
